FAERS Safety Report 7496086-0 (Version None)
Quarter: 2011Q2

REPORT INFORMATION
  Report Type: 
  Country: None (occurrence: None)
  Receive Date: 20110520
  Receipt Date: 20110520
  Transmission Date: 20111010
  Serious: Yes (Other)
  Sender: FDA-Public Use
  Company Number: None

PATIENT
  Age: 52 Year
  Sex: Female
  Weight: 51.7101 kg

DRUGS (1)
  1. OMEPRAZOLE [Suspect]
     Indication: HYPERCHLORHYDRIA
     Dosage: 20MG 1/DAY PO
     Route: 048
     Dates: start: 20110505, end: 20110518

REACTIONS (7)
  - JOINT SWELLING [None]
  - ABDOMINAL DISTENSION [None]
  - DYSPHONIA [None]
  - OROPHARYNGEAL PAIN [None]
  - OEDEMA PERIPHERAL [None]
  - BONE PAIN [None]
  - SWELLING FACE [None]
